FAERS Safety Report 13150850 (Version 1)
Quarter: 2017Q1

REPORT INFORMATION
  Report Type: Spontaneous
  Country: US (occurrence: US)
  Receive Date: 20170125
  Receipt Date: 20170125
  Transmission Date: 20170428
  Serious: No
  Sender: FDA-Public Use
  Company Number: US-PFIZER INC-2016ANA00065

PATIENT
  Age: 71 Year
  Sex: Female
  Weight: 62.13 kg

DRUGS (3)
  1. KERYDIN [Suspect]
     Active Substance: TAVABOROLE
     Indication: FUNGAL INFECTION
     Dosage: 1 DOSAGE UNITS, 1X/DAY
     Route: 061
     Dates: start: 20160217
  2. UNSPECIFIED CONCOMITANT MEDICATION(S) [Concomitant]
     Dosage: UNK
  3. KERYDIN [Suspect]
     Active Substance: TAVABOROLE
     Indication: FUNGAL INFECTION
     Dosage: 1 DOSAGE UNITS, 1X/DAY
     Route: 061
     Dates: start: 20160212, end: 20160214

REACTIONS (1)
  - Drug administered at inappropriate site [Not Recovered/Not Resolved]
